FAERS Safety Report 21229874 (Version 3)
Quarter: 2022Q3

REPORT INFORMATION
  Report Type: Spontaneous
  Country: US (occurrence: US)
  Receive Date: 20220818
  Receipt Date: 20220907
  Transmission Date: 20221027
  Serious: No
  Sender: FDA-Public Use
  Company Number: US-ELI_LILLY_AND_COMPANY-US202208009221

PATIENT
  Sex: Female
  Weight: 81.6 kg

DRUGS (4)
  1. TADALAFIL [Suspect]
     Active Substance: TADALAFIL
     Indication: Product used for unknown indication
     Dosage: UNK UNK, UNKNOWN
     Route: 065
     Dates: start: 202207
  2. REMODULIN [Suspect]
     Active Substance: TREPROSTINIL
     Indication: Pulmonary arterial hypertension
     Dosage: UNK UNK, OTHER (8 NG/KG/MIN, CONTINUOUS)
     Route: 042
     Dates: start: 20220725
  3. REMODULIN [Suspect]
     Active Substance: TREPROSTINIL
     Dosage: UNK UNK, OTHER (20 NG/KG/MIN, CONTINUOUS)
     Route: 042
  4. OPSUMIT [Suspect]
     Active Substance: MACITENTAN
     Indication: Product used for unknown indication
     Dosage: UNK, UNKNOWN
     Route: 065
     Dates: start: 202207

REACTIONS (8)
  - Flatulence [Unknown]
  - Abdominal distension [Unknown]
  - Gastrointestinal pain [Unknown]
  - Sleep disorder due to a general medical condition [Unknown]
  - Diarrhoea [Unknown]
  - Pain [Unknown]
  - Dyspepsia [Unknown]
  - Headache [Unknown]
